FAERS Safety Report 18535294 (Version 1)
Quarter: 2020Q4

REPORT INFORMATION
  Report Type: Spontaneous
  Country: SE (occurrence: SE)
  Receive Date: 20201123
  Receipt Date: 20201123
  Transmission Date: 20210114
  Serious: Yes (Other)
  Sender: FDA-Public Use
  Company Number: PHHY2017SE070050

PATIENT
  Age: 49 Year
  Sex: Female

DRUGS (10)
  1. MYCOPHENOLATE MOFETIL. [Suspect]
     Active Substance: MYCOPHENOLATE MOFETIL
     Indication: NEPHRITIC SYNDROME
     Dosage: 1 G,QD
     Route: 065
     Dates: start: 2014
  2. BETAMETHASONE. [Suspect]
     Active Substance: BETAMETHASONE
     Indication: NEPHRITIS
  3. RITUXIMAB. [Concomitant]
     Active Substance: RITUXIMAB
     Dosage: 500 MG
     Route: 065
  4. METHOTREXATE. [Concomitant]
     Active Substance: METHOTREXATE
     Indication: SKIN INFECTION
     Dosage: UNK
     Route: 065
  5. BETAMETHASONE. [Suspect]
     Active Substance: BETAMETHASONE
     Indication: SKIN INFECTION
     Dosage: 1.5 G, QD
     Route: 048
     Dates: start: 2014
  6. METHYLPREDNISOLONE. [Suspect]
     Active Substance: METHYLPREDNISOLONE
     Dosage: PULSE THERAPY
     Route: 065
  7. BETAMETHASONE. [Suspect]
     Active Substance: BETAMETHASONE
     Indication: HENOCH-SCHONLEIN PURPURA
     Dosage: 8 MG, QD
     Route: 042
     Dates: start: 2014, end: 201508
  8. RITUXIMAB. [Concomitant]
     Active Substance: RITUXIMAB
     Indication: NEPHRITIS
     Dosage: 600 MG
     Route: 065
  9. MYCOPHENOLATE MOFETIL. [Suspect]
     Active Substance: MYCOPHENOLATE MOFETIL
     Indication: NEPHRITIS
     Dosage: 500 MG, QD
     Route: 042
  10. METHYLPREDNISOLONE. [Suspect]
     Active Substance: METHYLPREDNISOLONE
     Indication: HENOCH-SCHONLEIN PURPURA NEPHRITIS
     Dosage: 500 MG, BID
     Route: 042
     Dates: start: 2014

REACTIONS (6)
  - Condition aggravated [Unknown]
  - Blood creatinine increased [Recovering/Resolving]
  - Nephrotic syndrome [Recovering/Resolving]
  - Diarrhoea haemorrhagic [Recovering/Resolving]
  - Nephritic syndrome [Recovering/Resolving]
  - Drug ineffective [Unknown]

NARRATIVE: CASE EVENT DATE: 2014
